FAERS Safety Report 4367361-3 (Version None)
Quarter: 2004Q2

REPORT INFORMATION
  Report Type: 
  Country: None (occurrence: None)
  Receive Date: 20040525
  Receipt Date: 20031204
  Transmission Date: 20050107
  Serious: Yes (Life-Threatening)
  Sender: FDA-Public Use
  Company Number: 2003188112US

PATIENT
  Age: 66 Year
  Sex: Female

DRUGS (2)
  1. SOLU-MEDROL [Suspect]
     Indication: PREMEDICATION
     Dosage: 95 MG, SINGLE, IV
     Route: 042
     Dates: start: 20031118, end: 20031118
  2. LASIX [Suspect]
     Dosage: 20MG Q8HR, IV
     Route: 042
     Dates: start: 20031117, end: 20031118

REACTIONS (1)
  - BRONCHOSPASM [None]
